FAERS Safety Report 6685445-1 (Version None)
Quarter: 2010Q2

REPORT INFORMATION
  Report Type: 
  Country: None (occurrence: None)
  Receive Date: 20100419
  Receipt Date: 20100407
  Transmission Date: 20101027
  Serious: Yes (Hospitalization)
  Sender: FDA-Public Use
  Company Number: US-BIOGENIDEC-2010BI004977

PATIENT
  Age: 45 Year
  Sex: Female
  Weight: 56 kg

DRUGS (12)
  1. TYSABRI [Suspect]
     Indication: MULTIPLE SCLEROSIS
     Route: 042
     Dates: start: 20071022, end: 20080624
  2. TYSABRI [Suspect]
     Route: 042
     Dates: start: 20090428, end: 20100308
  3. IBUPROFEN [Concomitant]
     Route: 048
  4. TYLENOL-500 [Concomitant]
     Route: 048
  5. EFFEXOR [Concomitant]
     Route: 048
  6. LEVETIRACETAM [Concomitant]
     Route: 048
  7. CLONAZEPAM [Concomitant]
  8. ZONISAMIDE [Concomitant]
  9. HYDROCODONE BITARTRATE [Concomitant]
  10. FERROUS SULFATE TAB [Concomitant]
     Route: 048
  11. PROSTAT (LIQUID PROTEIN SUPPLEMENT) [Concomitant]
     Route: 048
  12. NIZORAL [Concomitant]

REACTIONS (6)
  - CONVULSION [None]
  - DRUG INEFFECTIVE [None]
  - HEADACHE [None]
  - MEMORY IMPAIRMENT [None]
  - MULTIPLE SCLEROSIS RELAPSE [None]
  - PYREXIA [None]
